FAERS Safety Report 17318709 (Version 1)
Quarter: 2020Q1

REPORT INFORMATION
  Report Type: Spontaneous
  Country: US (occurrence: US)
  Receive Date: 20200124
  Receipt Date: 20200124
  Transmission Date: 20200409
  Serious: No
  Sender: FDA-Public Use
  Company Number: US-009507513-2001USA007773

PATIENT
  Sex: Male

DRUGS (8)
  1. SINEMET [Suspect]
     Active Substance: CARBIDOPA\LEVODOPA
     Indication: PARKINSON^S DISEASE
     Dosage: STRENGTH 25/100, DOSE 12/100 MILLIGRAM (MG) THREE TIMES DAILY
     Route: 048
  2. ATORVASTATIN [Concomitant]
     Active Substance: ATORVASTATIN
  3. CARBIDOPA (+) LEVODOPA [Suspect]
     Active Substance: CARBIDOPA\LEVODOPA
     Dosage: UNK
     Dates: start: 2019, end: 2019
  4. LEVODOPA [Concomitant]
     Active Substance: LEVODOPA
  5. CLOPIDOGREL [Concomitant]
     Active Substance: CLOPIDOGREL BISULFATE
  6. ALLOPURINOL. [Concomitant]
     Active Substance: ALLOPURINOL
  7. ZETIA [Concomitant]
     Active Substance: EZETIMIBE
  8. PERINDOPRIL [Concomitant]
     Active Substance: PERINDOPRIL

REACTIONS (5)
  - Speech disorder [Not Recovered/Not Resolved]
  - Limb injury [Recovered/Resolved]
  - Fall [Unknown]
  - Gait disturbance [Not Recovered/Not Resolved]
  - Drug ineffective [Unknown]

NARRATIVE: CASE EVENT DATE: 2019
